FAERS Safety Report 23352382 (Version 3)
Quarter: 2024Q1

REPORT INFORMATION
  Report Type: Spontaneous
  Country: US (occurrence: US)
  Receive Date: 20231229
  Receipt Date: 20240227
  Transmission Date: 20240410
  Serious: Yes (Other)
  Sender: FDA-Public Use
  Company Number: US-SA-SAC20231215001230

PATIENT

DRUGS (1)
  1. LARONIDASE [Suspect]
     Active Substance: LARONIDASE
     Indication: Mucopolysaccharidosis I
     Dosage: 63.8 (UNITS NOT KNOWN), QW
     Route: 042
     Dates: start: 20191219

REACTIONS (14)
  - Abortion spontaneous [Unknown]
  - Exposure during pregnancy [Unknown]
  - Polycystic ovarian syndrome [Unknown]
  - Weight decreased [Unknown]
  - Cardiac disorder [Unknown]
  - Nasopharyngitis [Unknown]
  - Sleep disorder due to general medical condition, insomnia type [Unknown]
  - Oropharyngeal pain [Unknown]
  - Feeling abnormal [Unknown]
  - Pain in extremity [Unknown]
  - Muscle strain [Unknown]
  - Weight increased [Unknown]
  - Cough [Unknown]
  - Cough [Unknown]

NARRATIVE: CASE EVENT DATE: 20230101
